FAERS Safety Report 6173932-4 (Version None)
Quarter: 2009Q2

REPORT INFORMATION
  Report Type: 
  Country: None (occurrence: None)
  Receive Date: 20090430
  Receipt Date: 20090420
  Transmission Date: 20091009
  Serious: Yes (Hospitalization)
  Sender: FDA-Public Use
  Company Number: GB-ELI_LILLY_AND_COMPANY-GB200902005944

PATIENT
  Sex: Male
  Weight: 87 kg

DRUGS (7)
  1. ALIMTA [Suspect]
     Indication: MESOTHELIOMA
     Dosage: 500 MG, UNK
     Route: 042
     Dates: start: 20080808
  2. CISPLATIN [Concomitant]
     Indication: MESOTHELIOMA
     Dosage: 75 MG, UNK
     Dates: start: 20080808
  3. FOLIC ACID [Concomitant]
     Dosage: 400 MG, UNK
     Route: 048
  4. PERINDOPRIL [Concomitant]
     Indication: HYPERTENSION
     Dosage: 4 MG, UNK
     Route: 048
     Dates: end: 20080813
  5. ASPIRIN [Concomitant]
     Dosage: 75 MG, UNK
     Route: 048
     Dates: end: 20080808
  6. SIMVASTATIN [Concomitant]
     Indication: BLOOD CHOLESTEROL INCREASED
     Dosage: 40 MG, UNK
     Route: 048
  7. INDAPAMIDE [Concomitant]
     Indication: HYPERTENSION
     Dosage: 1.5 MG, UNK
     Route: 048
     Dates: end: 20080813

REACTIONS (3)
  - DIZZINESS [None]
  - LOSS OF CONSCIOUSNESS [None]
  - VOMITING [None]
